FAERS Safety Report 4761190-4 (Version None)
Quarter: 2005Q3

REPORT INFORMATION
  Report Type: 
  Country: None (occurrence: None)
  Receive Date: 20050902
  Receipt Date: 20050902
  Transmission Date: 20060218
  Serious: Yes (Life-Threatening, Hospitalization, Disabling)
  Sender: FDA-Public Use
  Company Number: None

PATIENT
  Age: 33 Year
  Sex: Female
  Weight: 104.3273 kg

DRUGS (1)
  1. CYMBALTA [Suspect]
     Indication: MAJOR DEPRESSION
     Dosage: 30MG  ONCE A DAY ORAL
     Route: 048
     Dates: start: 20040915, end: 20050901

REACTIONS (10)
  - ARTERIAL INJURY [None]
  - BLINDNESS [None]
  - BRAIN DAMAGE [None]
  - DEAFNESS [None]
  - DEPRESSION [None]
  - FACIAL PALSY [None]
  - GUN SHOT WOUND [None]
  - SMOKER [None]
  - SUICIDAL IDEATION [None]
  - SUICIDE ATTEMPT [None]
